FAERS Safety Report 10420224 (Version 1)
Quarter: 2014Q3

REPORT INFORMATION
  Report Type: Report from Study
  Country: US (occurrence: None)
  Receive Date: 20140804
  Receipt Date: 20140804
  Transmission Date: 20150326
  Serious: Yes (Other)
  Sender: FDA-Public Use
  Company Number: 2013US008883

PATIENT
  Age: 45 Year
  Sex: Male
  Weight: 101.6 kg

DRUGS (7)
  1. ADVAIR DISKUS [Concomitant]
     Active Substance: FLUTICASONE PROPIONATE\SALMETEROL XINAFOATE
  2. FLOMAX /00889901/ (MORNIFLUMATE) [Concomitant]
  3. PROTONIX [Concomitant]
     Active Substance: PANTOPRAZOLE SODIUM
  4. LOPRESSOR [Concomitant]
     Active Substance: METOPROLOL TARTRATE
  5. GLASSIA [Suspect]
     Active Substance: .ALPHA.1-PROTEINASE INHIBITOR HUMAN
     Indication: ALPHA-1 ANTI-TRYPSIN DEFICIENCY
     Dosage: 6 G, 1/WEEK, INTRAVENOUS?
     Route: 042
     Dates: start: 201204
  6. PRO-AIR (PROCATEROL HYDROCHLORIDE) [Concomitant]
  7. ALBUTEROL /00139501/ (SALBUTAMOL) [Concomitant]
     Active Substance: ALBUTEROL

REACTIONS (7)
  - Nasopharyngitis [None]
  - Thrombosis [None]
  - Nerve compression [None]
  - Hypoaesthesia [None]
  - Headache [None]
  - Condition aggravated [None]
  - Cervical spinal stenosis [None]

NARRATIVE: CASE EVENT DATE: 20131002
